FAERS Safety Report 8815865 (Version 1)
Quarter: 2012Q4

REPORT INFORMATION
  Report Type: Report from Study
  Country: CA (occurrence: CA)
  Receive Date: 20120928
  Receipt Date: 20120928
  Transmission Date: 20130627
  Serious: Yes (Other)
  Sender: FDA-Public Use
  Company Number: CA-ROCHE-1137736

PATIENT
  Sex: Male
  Weight: 74.91 kg

DRUGS (4)
  1. AVASTIN [Suspect]
     Indication: GLIOBLASTOMA
     Route: 042
     Dates: start: 20120601
  2. NORVASC [Concomitant]
  3. KEPPRA [Concomitant]
  4. AVALIDE [Concomitant]

REACTIONS (3)
  - Drug effect decreased [Unknown]
  - Neoplasm [Not Recovered/Not Resolved]
  - Disease progression [Unknown]
